FAERS Safety Report 11177624 (Version 1)
Quarter: 2015Q2

REPORT INFORMATION
  Report Type: Spontaneous
  Country: US (occurrence: None)
  Receive Date: 20150608
  Receipt Date: 20150608
  Transmission Date: 20150821
  Serious: Yes (Life-Threatening, Hospitalization, Disabling)
  Sender: FDA-Public Use
  Company Number: None

PATIENT
  Age: 69 Year
  Sex: Male
  Weight: 104.33 kg

DRUGS (13)
  1. LOPRESSOR [Concomitant]
     Active Substance: METOPROLOL TARTRATE
  2. ASA [Concomitant]
     Active Substance: ASPIRIN
  3. MULTIVITS [Concomitant]
  4. CETIRIZINE [Concomitant]
     Active Substance: CETIRIZINE HYDROCHLORIDE
  5. BENDAMUSTIN [Concomitant]
     Active Substance: BENDAMUSTINE
  6. LISINOPRIL. [Concomitant]
     Active Substance: LISINOPRIL
  7. FORADIL [Concomitant]
     Active Substance: FORMOTEROL FUMARATE
  8. SPITIVA [Concomitant]
  9. ASTHMANEX [Concomitant]
  10. XOLAIR [Suspect]
     Active Substance: OMALIZUMAB
     Indication: ASTHMA
     Dosage: INTO THE MUSCLE
     Route: 030
  11. RITUXAN [Concomitant]
     Active Substance: RITUXIMAB
  12. PSYCH DRUGS [Concomitant]
  13. FISH OIL [Concomitant]
     Active Substance: FISH OIL

REACTIONS (1)
  - B-cell lymphoma [None]

NARRATIVE: CASE EVENT DATE: 20150512
